FAERS Safety Report 25838120 (Version 1)
Quarter: 2025Q3

REPORT INFORMATION
  Report Type: Spontaneous
  Country: US (occurrence: US)
  Receive Date: 20250923
  Receipt Date: 20250923
  Transmission Date: 20251021
  Serious: No
  Sender: ANI
  Company Number: US-ANIPHARMA-2025-US-030563

PATIENT
  Age: 53 Year
  Sex: Female
  Weight: 105.23 kg

DRUGS (1)
  1. CORTICOTROPIN [Suspect]
     Active Substance: CORTICOTROPIN
     Indication: Rheumatoid arthritis
     Route: 030
     Dates: start: 202505

REACTIONS (3)
  - Pain [Unknown]
  - Condition aggravated [Unknown]
  - Contraindicated product administered [Unknown]
